FAERS Safety Report 9768542 (Version 1)
Quarter: 2013Q4

REPORT INFORMATION
  Report Type: Spontaneous
  Country: GB (occurrence: GB)
  Receive Date: 20131217
  Receipt Date: 20131217
  Transmission Date: 20140711
  Serious: Yes (Death)
  Sender: FDA-Public Use
  Company Number: GB-MYLANLABS-2013S1027571

PATIENT
  Age: 22 Year
  Sex: Male
  Weight: 47 kg

DRUGS (6)
  1. AZATHIOPRINE [Suspect]
     Indication: COLITIS ULCERATIVE
     Route: 048
     Dates: start: 20130701, end: 20130721
  2. ADCAL D3 [Concomitant]
     Indication: PRODUCT USED FOR UNKNOWN INDICATION
     Route: 048
     Dates: start: 20130702
  3. OMEPRAZOLE [Concomitant]
     Indication: PRODUCT USED FOR UNKNOWN INDICATION
     Dates: start: 20130702
  4. PENTASA [Concomitant]
     Indication: COLITIS ULCERATIVE
     Route: 054
     Dates: start: 20130701
  5. PENTASA [Concomitant]
     Indication: COLITIS ULCERATIVE
     Route: 048
  6. PREDNISOLONE [Concomitant]
     Indication: COLITIS ULCERATIVE
     Route: 048
     Dates: start: 20130702

REACTIONS (4)
  - Cerebral haemorrhage [Fatal]
  - Multi-organ failure [Fatal]
  - Bone marrow failure [Fatal]
  - Sepsis [Fatal]
